FAERS Safety Report 10655225 (Version 1)
Quarter: 2014Q4

REPORT INFORMATION
  Report Type: Spontaneous
  Country: IT (occurrence: None)
  Receive Date: 20141212
  Receipt Date: 20141212
  Transmission Date: 20150529
  Serious: Yes (Hospitalization)
  Sender: FDA-Public Use
  Company Number: 8000400

PATIENT
  Age: 56 Year
  Sex: Female

DRUGS (2)
  1. EUTIROX (LEVOTHYROXINE SODIUM) (LEVOTHYROXINE SODIUM) [Suspect]
     Active Substance: LEVOTHYROXINE SODIUM
     Indication: THYROID DISORDER
     Dosage: MONDAY TO THURSDAY
     Route: 048
     Dates: start: 20050101
  2. GRADIENT (FLUNARIZINE DIHYDROCHLORIDE) (FLUNARIZINE DIHYDROCHLORIDE) [Concomitant]

REACTIONS (3)
  - Atrial fibrillation [None]
  - Hyperthyroidism [None]
  - Tachycardia paroxysmal [None]

NARRATIVE: CASE EVENT DATE: 20140817
